FAERS Safety Report 24852196 (Version 1)
Quarter: 2025Q1

REPORT INFORMATION
  Report Type: Spontaneous
  Country: US (occurrence: US)
  Receive Date: 20250116
  Receipt Date: 20250116
  Transmission Date: 20250409
  Serious: Yes (Death)
  Sender: Kenvue
  Company Number: US-KENVUE CANADA INC.-20250103746

PATIENT
  Age: 33 Year
  Sex: Female

DRUGS (2)
  1. DIPHENHYDRAMINE HYDROCHLORIDE [Suspect]
     Active Substance: DIPHENHYDRAMINE HYDROCHLORIDE
     Indication: Suicide attempt
     Route: 048
  2. CITALOPRAM [Suspect]
     Active Substance: CITALOPRAM
     Indication: Suicide attempt
     Route: 048

REACTIONS (1)
  - Toxicity to various agents [Fatal]
